FAERS Safety Report 8583618-4 (Version None)
Quarter: 2012Q3

REPORT INFORMATION
  Report Type: 
  Country: None (occurrence: None)
  Receive Date: 20120809
  Receipt Date: 20120628
  Transmission Date: 20120928
  Serious: Yes (Hospitalization)
  Sender: FDA-Public Use
  Company Number: JP-MERCK-2012SP014484

PATIENT
  Age: 67 Year
  Sex: Male
  Weight: 67 kg

DRUGS (7)
  1. REBETOL [Suspect]
     Indication: HEPATITIS C
     Dosage: 800 MG, QD
     Route: 048
     Dates: start: 20120228, end: 20120308
  2. ALLEGRA [Concomitant]
     Indication: SKIN DISORDER
     Dosage: UPDATE (02APR2012): FORMULATION: POR AND CUMULATIVE DOSE 120 MG
     Route: 048
     Dates: start: 20120308, end: 20120314
  3. ANTIVIRAL (UNSPECIFIED) [Suspect]
     Indication: HEPATITIS C
     Dosage: 1500 MG, QD
     Route: 048
     Dates: start: 20120228, end: 20120308
  4. PEGINTERFERON ALFA-2B [Suspect]
     Indication: HEPATITIS C
     Dosage: 1.0 ?G/KG, QW
     Route: 058
     Dates: start: 20120228, end: 20120308
  5. URDESTON [Concomitant]
     Indication: HEPATITIS C
     Dosage: UPDATE (28JUN2012)
     Route: 048
  6. FULMETA [Concomitant]
     Indication: SKIN DISORDER
     Dosage: UPDATE (02APR2012): DOSAGE TEXT: SINGLE USE, FORMULATION: OIT
     Route: 061
     Dates: start: 20120308
  7. AMMONIUM GLYCYRRHIZATE (+) GLYCINE (+) RACEMETHIONINE [Concomitant]
     Indication: HEPATITIS C
     Dosage: UPDATE (28JUN2012)
     Route: 048

REACTIONS (1)
  - DRUG ERUPTION [None]
